FAERS Safety Report 9286721 (Version 2)
Quarter: 2013Q3

REPORT INFORMATION
  Report Type: Spontaneous
  Country: US (occurrence: US)
  Receive Date: 20130513
  Receipt Date: 20130701
  Transmission Date: 20140515
  Serious: No
  Sender: FDA-Public Use
  Company Number: US-BAYER-2013-059594

PATIENT
  Age: 56 Year
  Sex: Female

DRUGS (1)
  1. CLIMARA PRO [Suspect]
     Indication: OESTROGEN DEFICIENCY
     Dosage: UNK
     Route: 062

REACTIONS (4)
  - Mood altered [Recovered/Resolved]
  - Vulvovaginal dryness [Recovered/Resolved]
  - Breast tenderness [Recovered/Resolved]
  - Drug ineffective [Recovered/Resolved]
